FAERS Safety Report 13996992 (Version 2)
Quarter: 2017Q4

REPORT INFORMATION
  Report Type: Report from Study
  Country: GB (occurrence: GB)
  Receive Date: 20170921
  Receipt Date: 20171026
  Transmission Date: 20180321
  Serious: No
  Sender: FDA-Public Use
  Company Number: GB-UCBSA-2017016681

PATIENT
  Age: 33 Year
  Sex: Female
  Weight: 65 kg

DRUGS (3)
  1. CERTOLIZUMAB PEGOL RA AUTOCLICKS [Suspect]
     Active Substance: CERTOLIZUMAB PEGOL
     Indication: RHEUMATOID ARTHRITIS
     Dosage: 400 MG, EV 2 WEEKS(QOW) ON WEEK0, 2 AND 4
     Route: 058
     Dates: start: 20170424, end: 2017
  2. PREDNISOLONE. [Concomitant]
     Active Substance: PREDNISOLONE
     Indication: ARTHRITIS
     Dosage: UNKNOWN DOSE
     Dates: start: 20161201
  3. CERTOLIZUMAB PEGOL RA AUTOCLICKS [Suspect]
     Active Substance: CERTOLIZUMAB PEGOL
     Dosage: 200 MG, EV 2 WEEKS(QOW)
     Route: 058
     Dates: start: 2017

REACTIONS (3)
  - Fatigue [Unknown]
  - Exposure during pregnancy [Unknown]
  - Haemoglobin decreased [Unknown]

NARRATIVE: CASE EVENT DATE: 2017
